FAERS Safety Report 15099479 (Version 1)
Quarter: 2018Q3

REPORT INFORMATION
  Report Type: Spontaneous
  Country: DE (occurrence: DE)
  Receive Date: 20180702
  Receipt Date: 20180702
  Transmission Date: 20181010
  Serious: Yes (Hospitalization)
  Sender: FDA-Public Use
  Company Number: PHHY2018DE032932

PATIENT
  Sex: Female

DRUGS (3)
  1. AZOPT [Suspect]
     Active Substance: BRINZOLAMIDE
     Indication: PRODUCT USED FOR UNKNOWN INDICATION
     Dosage: 1 GTT, BID
     Route: 047
     Dates: start: 201804
  2. AZOPT [Interacting]
     Active Substance: BRINZOLAMIDE
     Dosage: 1 GTT, BID
     Route: 047
     Dates: start: 20180609, end: 20180623
  3. MILNACIPRAN [Interacting]
     Active Substance: MILNACIPRAN
     Indication: DEPRESSION
     Route: 065

REACTIONS (2)
  - Drug interaction [Recovering/Resolving]
  - Depression [Recovering/Resolving]
